FAERS Safety Report 9245616 (Version 1)
Quarter: 2013Q2

REPORT INFORMATION
  Report Type: Spontaneous
  Country: US (occurrence: US)
  Receive Date: 20130422
  Receipt Date: 20130422
  Transmission Date: 20140414
  Serious: No
  Sender: FDA-Public Use
  Company Number: US-ROXANE LABORATORIES, INC.-2013-RO-00531RO

PATIENT
  Sex: Female

DRUGS (1)
  1. FLECAINIDE [Suspect]
     Indication: ARRHYTHMIA
     Dosage: 200 MG
     Route: 048

REACTIONS (3)
  - Throat irritation [Unknown]
  - Dysphonia [Unknown]
  - Product quality issue [Unknown]
